FAERS Safety Report 23864283 (Version 2)
Quarter: 2024Q2

REPORT INFORMATION
  Report Type: Spontaneous
  Country: IT (occurrence: IT)
  Receive Date: 20240516
  Receipt Date: 20240528
  Transmission Date: 20240716
  Serious: Yes (Other)
  Sender: FDA-Public Use
  Company Number: IT-TEVA-VS-3197841

PATIENT
  Age: 33 Year
  Sex: Male

DRUGS (3)
  1. CISPLATIN [Suspect]
     Active Substance: CISPLATIN
     Indication: Spindle cell sarcoma
     Dosage: CONTINUOUS INFUSION FOR  48HOURS
     Route: 065
  2. DOXORUBICIN [Concomitant]
     Active Substance: DOXORUBICIN
     Indication: Spindle cell sarcoma
     Dosage: ON DAYS 13-16 WERE ADMINISTERED
     Route: 065
  3. METHOTREXATE [Concomitant]
     Active Substance: METHOTREXATE
     Indication: Spindle cell sarcoma
     Dosage: 12 G/M2 ON DAY 1
     Route: 065

REACTIONS (1)
  - Acute kidney injury [Recovered/Resolved]
